FAERS Safety Report 20829355 (Version 1)
Quarter: 2022Q2

REPORT INFORMATION
  Report Type: Spontaneous
  Country: US (occurrence: US)
  Receive Date: 20220513
  Receipt Date: 20220513
  Transmission Date: 20220721
  Serious: No
  Sender: FDA-Public Use
  Company Number: US-PFIZER INC-202200434437

PATIENT
  Age: 40 Year
  Sex: Female

DRUGS (2)
  1. XELJANZ XR [Suspect]
     Active Substance: TOFACITINIB CITRATE
     Dosage: UNK
     Dates: start: 20211101, end: 20220321
  2. XELJANZ XR [Suspect]
     Active Substance: TOFACITINIB CITRATE
     Dosage: UNK
     Dates: start: 20211217, end: 20220309

REACTIONS (1)
  - Drug ineffective [Unknown]
